FAERS Safety Report 10084906 (Version 1)
Quarter: 2014Q2

REPORT INFORMATION
  Report Type: Spontaneous
  Country: US (occurrence: US)
  Receive Date: 20140417
  Receipt Date: 20140417
  Transmission Date: 20141212
  Serious: No
  Sender: FDA-Public Use
  Company Number: US-BAXTER-2014BAX017913

PATIENT
  Sex: Female

DRUGS (2)
  1. DIANEAL LOW CALCIUM [Suspect]
     Indication: NEPHROPATHY
     Route: 033
     Dates: start: 201402
  2. DIANEAL LOW CALCIUM [Suspect]
     Indication: NEPHROPATHY
     Route: 033
     Dates: start: 201402

REACTIONS (1)
  - Fluid overload [Recovered/Resolved]
